FAERS Safety Report 11273462 (Version 1)
Quarter: 2015Q3

REPORT INFORMATION
  Report Type: Spontaneous
  Country: US (occurrence: None)
  Receive Date: 20150714
  Receipt Date: 20150714
  Transmission Date: 20151125
  Serious: Yes (Other)
  Sender: FDA-Public Use
  Company Number: None

PATIENT
  Age: 39 Year
  Sex: Female

DRUGS (1)
  1. MIRENA [Suspect]
     Active Substance: LEVONORGESTREL

REACTIONS (9)
  - Mood altered [None]
  - Arthralgia [None]
  - Pain in extremity [None]
  - Haemorrhage [None]
  - Back pain [None]
  - Muscle spasms [None]
  - Migraine [None]
  - Weight increased [None]
  - Loss of libido [None]

NARRATIVE: CASE EVENT DATE: 20150131
